FAERS Safety Report 5223868-8 (Version None)
Quarter: 2007Q1

REPORT INFORMATION
  Report Type: 
  Country: None (occurrence: None)
  Receive Date: 20070130
  Receipt Date: 20070122
  Transmission Date: 20070707
  Serious: Yes (Death, Life-Threatening, Hospitalization)
  Sender: FDA-Public Use
  Company Number: US-AVENTIS-200618882US

PATIENT
  Age: 82 Year

DRUGS (9)
  1. LOVENOX [Suspect]
     Dates: start: 20060923, end: 20060930
  2. LOVENOX [Suspect]
     Dates: start: 20060930, end: 20061009
  3. I.V. SOLUTIONS [Concomitant]
     Dosage: DOSE: UNK
  4. VASOTEC                            /00935901/ [Concomitant]
     Dosage: DOSE: UNK
  5. UNITHROID [Concomitant]
     Dosage: DOSE: UNK
  6. DOPAMINE HCL [Concomitant]
     Dosage: DOSE: UNK
  7. REGLAN                             /00041901/ [Concomitant]
     Dosage: DOSE: UNK
  8. ANCEF                              /00288502/ [Concomitant]
     Dosage: DOSE: UNK
     Dates: end: 20061008
  9. FLAGYL [Concomitant]
     Dosage: DOSE: UNK
     Dates: end: 20061008

REACTIONS (6)
  - BLOOD PRESSURE DECREASED [None]
  - DEATH [None]
  - HAEMATOCRIT DECREASED [None]
  - HAEMATOMA [None]
  - KLEBSIELLA BACTERAEMIA [None]
  - RETROPERITONEAL HAEMORRHAGE [None]
